FAERS Safety Report 17368800 (Version 1)
Quarter: 2020Q1

REPORT INFORMATION
  Report Type: Report from Study
  Country: NL (occurrence: NL)
  Receive Date: 20200204
  Receipt Date: 20200204
  Transmission Date: 20200409
  Serious: Yes (Hospitalization)
  Sender: FDA-Public Use
  Company Number: NVSC2020NL023799

PATIENT
  Age: 77 Year
  Sex: Male

DRUGS (2)
  1. SANDOSTATINE LAR [Suspect]
     Active Substance: OCTREOTIDE ACETATE
     Indication: NEUROENDOCRINE TUMOUR
     Dosage: 20 MG, Q4W, 20 MG/2 ML
     Route: 030
  2. SANDOSTATINE LAR [Suspect]
     Active Substance: OCTREOTIDE ACETATE
     Dosage: 20 MG, Q4W, 20 MG/2 ML
     Route: 030
     Dates: start: 20200114

REACTIONS (7)
  - Influenza [Recovering/Resolving]
  - Cough [Unknown]
  - Chills [Unknown]
  - Pyrexia [Unknown]
  - General physical health deterioration [Unknown]
  - Confusional state [Unknown]
  - Secretion discharge [Unknown]

NARRATIVE: CASE EVENT DATE: 20200119
